FAERS Safety Report 4694928-5 (Version None)
Quarter: 2005Q2

REPORT INFORMATION
  Report Type: 
  Country: None (occurrence: None)
  Receive Date: 20050620
  Receipt Date: 20050607
  Transmission Date: 20051028
  Serious: Yes (Life-Threatening, Hospitalization, Other)
  Sender: FDA-Public Use
  Company Number: GXKR2005US01212

PATIENT
  Age: 73 Year
  Sex: Female

DRUGS (6)
  1. ATENOLOL [Suspect]
     Dosage: SEE IMAGE
  2. FUROSEMIDE [Suspect]
  3. CANDESARTAN (CANDESARTAN) [Suspect]
     Dosage: 32 MG, QD
  4. DILTIAZEM [Suspect]
     Dosage: 120 MG, QD
  5. METOLAZONE [Concomitant]
  6. ISOSORBIDE MONONITRATE [Suspect]

REACTIONS (19)
  - ASTHENIA [None]
  - BLOOD CREATINE PHOSPHOKINASE INCREASED [None]
  - BLOOD CREATINE PHOSPHOKINASE MB INCREASED [None]
  - BLOOD CREATININE INCREASED [None]
  - BLOOD POTASSIUM INCREASED [None]
  - BLOOD UREA INCREASED [None]
  - CARDIAC MURMUR [None]
  - DIZZINESS [None]
  - DRUG INTERACTION [None]
  - DYSPNOEA [None]
  - HAEMATOCRIT DECREASED [None]
  - HAEMOGLOBIN DECREASED [None]
  - HYPOTENSION [None]
  - LETHARGY [None]
  - NAUSEA [None]
  - PALLOR [None]
  - SINUS ARREST [None]
  - TROPONIN I INCREASED [None]
  - VOMITING [None]
